FAERS Safety Report 9014446 (Version 1)
Quarter: 2013Q1

REPORT INFORMATION
  Report Type: Spontaneous
  Country: US (occurrence: US)
  Receive Date: 20130115
  Receipt Date: 20130115
  Transmission Date: 20140127
  Serious: Yes (Hospitalization)
  Sender: FDA-Public Use
  Company Number: US-GLAXOSMITHKLINE-A0815284A

PATIENT
  Age: 60 Year
  Sex: Female

DRUGS (1)
  1. AVANDAMET [Suspect]
     Indication: DIABETES MELLITUS
     Route: 048
     Dates: start: 200611, end: 200711

REACTIONS (4)
  - Cardiac failure congestive [Not Recovered/Not Resolved]
  - Cardiomegaly [Unknown]
  - Anaemia [Unknown]
  - Renal failure acute [Unknown]
